FAERS Safety Report 10779955 (Version 1)
Quarter: 2015Q1

REPORT INFORMATION
  Report Type: Spontaneous
  Country: US (occurrence: US)
  Receive Date: 20150210
  Receipt Date: 20150210
  Transmission Date: 20150721
  Serious: Yes (Other)
  Sender: FDA-Public Use
  Company Number: US-PFIZER INC-2015049066

PATIENT
  Sex: Male

DRUGS (1)
  1. DILANTIN [Suspect]
     Active Substance: PHENYTOIN
     Indication: SEIZURE
     Dosage: 6 DF, 1X/DAY EVERY NIGHT

REACTIONS (4)
  - Stress [Unknown]
  - Drug ineffective [Unknown]
  - Spinal fracture [Unknown]
  - Generalised tonic-clonic seizure [Unknown]
